FAERS Safety Report 9225576 (Version 2)
Quarter: 2013Q2

REPORT INFORMATION
  Report Type: Report from Study
  Country: US (occurrence: US)
  Receive Date: 20130411
  Receipt Date: 20130509
  Transmission Date: 20140414
  Serious: Yes (Hospitalization)
  Sender: FDA-Public Use
  Company Number: US-ROCHE-1209860

PATIENT
  Sex: 0

DRUGS (1)
  1. ALTEPLASE [Suspect]
     Indication: ISCHAEMIC STROKE
     Dosage: 0.9 MG/KG; 10% GIVEN AS BOLUS 90%
     Route: 042

REACTIONS (3)
  - Ischaemic stroke [Unknown]
  - Cerebral haemorrhage [Unknown]
  - Reocclusion [Unknown]
